FAERS Safety Report 16963865 (Version 1)
Quarter: 2019Q4

REPORT INFORMATION
  Report Type: Spontaneous
  Country: US (occurrence: US)
  Receive Date: 20191026
  Receipt Date: 20191026
  Transmission Date: 20200122
  Serious: Yes (Hospitalization, Disabling)
  Sender: FDA-Public Use
  Company Number: US-CPL-001315

PATIENT
  Age: 53 Year
  Sex: Female

DRUGS (7)
  1. BENAZEPRIL/BENAZEPRIL HYDROCHLORIDE [Concomitant]
     Indication: HYPERTENSION
  2. IRON [Concomitant]
     Active Substance: IRON
     Indication: ANAEMIA
  3. GEMFIBROZIL. [Suspect]
     Active Substance: GEMFIBROZIL
     Indication: DYSLIPIDAEMIA
     Dosage: 600 MG TWICE A DAY
  4. AMLODIPINE [Concomitant]
     Active Substance: AMLODIPINE BESYLATE
     Indication: HYPERTENSION
  5. NAPROXEN. [Concomitant]
     Active Substance: NAPROXEN
     Indication: ROTATOR CUFF SYNDROME
  6. SIMVASTATIN. [Suspect]
     Active Substance: SIMVASTATIN
     Indication: DYSLIPIDAEMIA
  7. HYDROCHLOROTHIAZIDE. [Concomitant]
     Active Substance: HYDROCHLOROTHIAZIDE
     Indication: HYPERTENSION

REACTIONS (1)
  - Tendon rupture [Recovering/Resolving]
